FAERS Safety Report 4868325-3 (Version None)
Quarter: 2005Q4

REPORT INFORMATION
  Report Type: 
  Country: None (occurrence: None)
  Receive Date: 20051229
  Receipt Date: 20050310
  Transmission Date: 20060501
  Serious: Yes (Hospitalization, Disabling)
  Sender: FDA-Public Use
  Company Number: DE-MERCK-0503DEU00101

PATIENT
  Age: 61 Year
  Sex: Female

DRUGS (8)
  1. VIOXX [Suspect]
     Route: 048
     Dates: start: 20030520
  2. VIOXX [Suspect]
     Route: 048
     Dates: end: 20040601
  3. VIOXX [Suspect]
     Route: 048
     Dates: start: 20030502
  4. BISOPROLOL FUMARATE [Concomitant]
     Route: 065
  5. ACETAMINOPHEN AND CODEINE PHOSPHATE [Concomitant]
     Route: 065
  6. OXAZEPAM [Concomitant]
     Route: 065
  7. SILIBININ [Concomitant]
     Route: 065
  8. RANITIDINE HYDROCHLORIDE [Concomitant]
     Route: 065

REACTIONS (2)
  - CEREBROVASCULAR ACCIDENT [None]
  - TRANSIENT ISCHAEMIC ATTACK [None]
